FAERS Safety Report 7853171-9 (Version None)
Quarter: 2011Q4

REPORT INFORMATION
  Report Type: 
  Country: None (occurrence: None)
  Receive Date: 20111026
  Receipt Date: 20111017
  Transmission Date: 20120403
  Serious: Yes (Other)
  Sender: FDA-Public Use
  Company Number: CA-MERCK-1110USA02400

PATIENT
  Age: 56 Year
  Sex: Male

DRUGS (3)
  1. LAMIVUDINE [Concomitant]
     Route: 065
  2. ISENTRESS [Suspect]
     Route: 065
  3. ABACAVIR SULFATE [Concomitant]
     Route: 065

REACTIONS (9)
  - ANXIETY [None]
  - DECREASED APPETITE [None]
  - MEMORY IMPAIRMENT [None]
  - PANIC ATTACK [None]
  - FEAR [None]
  - SLEEP DISORDER [None]
  - AFFECT LABILITY [None]
  - CONCOMITANT DISEASE AGGRAVATED [None]
  - DEPRESSION [None]
